FAERS Safety Report 13616253 (Version 1)
Quarter: 2017Q2

REPORT INFORMATION
  Report Type: Spontaneous
  Country: US (occurrence: US)
  Receive Date: 20170605
  Receipt Date: 20170605
  Transmission Date: 20170830
  Serious: Yes (Hospitalization)
  Sender: FDA-Public Use
  Company Number: None

PATIENT
  Age: 63 Year
  Sex: Male
  Weight: 85 kg

DRUGS (1)
  1. ENOXAPARIN [Suspect]
     Active Substance: ENOXAPARIN
     Indication: ATRIAL FIBRILLATION
     Route: 058
     Dates: start: 20110320, end: 20110326

REACTIONS (4)
  - Injection site bruising [None]
  - Haemorrhage [None]
  - Abdominal pain [None]
  - Acute kidney injury [None]

NARRATIVE: CASE EVENT DATE: 20110328
